FAERS Safety Report 17395868 (Version 2)
Quarter: 2020Q2

REPORT INFORMATION
  Report Type: Report from Study
  Country: None (occurrence: US)
  Receive Date: 20200205
  Receipt Date: 20200511
  Transmission Date: 20200713
  Serious: Yes (Hospitalization, Other)
  Sender: FDA-Public Use
  Company Number: US-ABBVIE-20K-163-3261502-00

PATIENT
  Age: 63 Year
  Sex: Female
  Weight: 136.2 kg

DRUGS (2)
  1. HUMIRA [Suspect]
     Active Substance: ADALIMUMAB
     Indication: HIDRADENITIS
     Route: 058
  2. HUMIRA [Suspect]
     Active Substance: ADALIMUMAB
     Route: 058
     Dates: start: 20191110

REACTIONS (6)
  - Rheumatoid arthritis [Unknown]
  - Abscess limb [Unknown]
  - Dyspnoea [Recovering/Resolving]
  - Large intestinal haemorrhage [Unknown]
  - Breast cyst rupture [Unknown]
  - Haemoglobin abnormal [Recovering/Resolving]

NARRATIVE: CASE EVENT DATE: 202001
